FAERS Safety Report 15640248 (Version 1)
Quarter: 2018Q4

REPORT INFORMATION
  Report Type: Report from Study
  Country: None (occurrence: ES)
  Receive Date: 20181120
  Receipt Date: 20181120
  Transmission Date: 20190205
  Serious: Yes (Death)
  Sender: FDA-Public Use
  Company Number: ES-ABBVIE-18S-144-2562951-00

PATIENT
  Age: 75 Year
  Sex: Male

DRUGS (1)
  1. DUODOPA [Suspect]
     Active Substance: CARBIDOPA\LEVODOPA
     Indication: PARKINSON^S DISEASE
     Dosage: MORNING DOSE:15+3 ML, CONTINUOUS DOSE: 5.8 ML/H, EXTRA DOSE: 4.3 ML
     Route: 050
     Dates: start: 20151020

REACTIONS (4)
  - Respiratory disorder [Fatal]
  - Oxygen saturation decreased [Fatal]
  - Dysphagia [Unknown]
  - Pneumonia aspiration [Fatal]

NARRATIVE: CASE EVENT DATE: 20181108
